FAERS Safety Report 6372092-4 (Version None)
Quarter: 2009Q3

REPORT INFORMATION
  Report Type: 
  Country: None (occurrence: None)
  Receive Date: 20090917
  Receipt Date: 20090904
  Transmission Date: 20100115
  Serious: Yes (Hospitalization, Other)
  Sender: FDA-Public Use
  Company Number: ADR18692009

PATIENT
  Sex: Male

DRUGS (7)
  1. SALBUTAMOL (MFR: UNKNOWN) [Suspect]
     Dosage: TRANSPLACENTAL
     Route: 064
  2. AMINOPHYLLINE [Concomitant]
  3. AMOXICILLIN [Concomitant]
  4. ATROVENT [Concomitant]
  5. CLARITHROMYCIN [Concomitant]
  6. HYDROCORTISONE [Concomitant]
  7. MAGNESIUM SULFATE [Concomitant]

REACTIONS (4)
  - CAESAREAN SECTION [None]
  - FOETAL DISTRESS SYNDROME [None]
  - MATERNAL DRUGS AFFECTING FOETUS [None]
  - TACHYCARDIA [None]
